FAERS Safety Report 9097284 (Version 2)
Quarter: 2013Q3

REPORT INFORMATION
  Report Type: Spontaneous
  Country: BR (occurrence: BR)
  Receive Date: 20130212
  Receipt Date: 20130712
  Transmission Date: 20140515
  Serious: Yes (Hospitalization)
  Sender: FDA-Public Use
  Company Number: PHHY2013BR012418

PATIENT
  Sex: Male

DRUGS (2)
  1. METFORMIN SANDOZ [Suspect]
     Route: 048
  2. GLIBENCLAMIDE [Concomitant]

REACTIONS (3)
  - Gastric disorder [Recovered/Resolved]
  - Faeces discoloured [Recovered/Resolved]
  - Diarrhoea [Recovered/Resolved]
